FAERS Safety Report 18349397 (Version 1)
Quarter: 2020Q4

REPORT INFORMATION
  Report Type: Spontaneous
  Country: DE (occurrence: DE)
  Receive Date: 20201006
  Receipt Date: 20201006
  Transmission Date: 20210114
  Serious: Yes (Hospitalization)
  Sender: FDA-Public Use
  Company Number: DE-PFIZER INC-2020378620

PATIENT
  Age: 43 Year
  Sex: Female

DRUGS (14)
  1. IBUPROFEN. [Suspect]
     Active Substance: IBUPROFEN
     Dosage: 1200 MG, 1X/DAY, 600MG, 1-0-1-0, TABLETS
     Route: 048
  2. VALSARTAN. [Concomitant]
     Active Substance: VALSARTAN
     Dosage: 80 MG, 1-0-0-0, TABLETS
     Route: 048
  3. TORASEMID [Concomitant]
     Active Substance: TORSEMIDE
     Dosage: 10 MG, 1X/DAY, 1-0-0-0
  4. LEVOTHYROXIN [Concomitant]
     Active Substance: LEVOTHYROXINE
     Dosage: 150 UG, 1X/DAY, 1-0-0-0
  5. INSULIN GLARGINE [Concomitant]
     Active Substance: INSULIN GLARGINE
     Dosage: UNK MG, ACCORDING TO THE SCHEME
  6. PREDNISOLONE. [Suspect]
     Active Substance: PREDNISOLONE
     Dosage: 5 MG, 1X/DAY, 1-0-0-0
  7. AMITRIPTYLINE [Concomitant]
     Active Substance: AMITRIPTYLINE
     Dosage: 25 MG, 1X/DAY, 0-0-1-0
  8. METOPROLOL. [Concomitant]
     Active Substance: METOPROLOL
     Dosage: 190 MG, 1X/DAY, 1-0-1-0
  9. INSULIN LISPRO [Concomitant]
     Active Substance: INSULIN LISPRO
     Dosage: UNK MG, ACCORDING TO THE SCHEME
  10. LEVETIRACETAM. [Concomitant]
     Active Substance: LEVETIRACETAM
     Dosage: 2000 MG, 1X/DAY, 1000 MG, 1-0-1-0
     Route: 048
  11. DRONEDARONE [Concomitant]
     Active Substance: DRONEDARONE
     Dosage: 80 MG, 1X/DAY, 40 MG, 1-0-1-0
     Route: 048
  12. PANTOPRAZOL [PANTOPRAZOLE] [Concomitant]
     Active Substance: PANTOPRAZOLE
     Dosage: 40 MG, 1X/DAY,  1-0-0-0
  13. RAMIPRIL. [Concomitant]
     Active Substance: RAMIPRIL
     Dosage: 2.5 MG, 1X/DAY, 1-0-0-0
  14. LORAZEPAM. [Concomitant]
     Active Substance: LORAZEPAM
     Dosage: 1 MG, FREQ:{AS NECESSARY};1 MG, IF NECESSARY

REACTIONS (4)
  - Angina pectoris [Unknown]
  - General physical health deterioration [Unknown]
  - Product use issue [Unknown]
  - Electrolyte imbalance [Unknown]
